FAERS Safety Report 7093592-8 (Version None)
Quarter: 2010Q4

REPORT INFORMATION
  Report Type: 
  Country: None (occurrence: None)
  Receive Date: 20101110
  Receipt Date: 20101102
  Transmission Date: 20110411
  Serious: Yes (Other)
  Sender: FDA-Public Use
  Company Number: US-PURDUE-USA-2010-0052561

PATIENT
  Age: 26 Year
  Sex: Female

DRUGS (1)
  1. OXYCONTIN [Suspect]
     Indication: PAIN
     Dosage: 40 MG, BID

REACTIONS (4)
  - DRUG INEFFECTIVE [None]
  - FEELING HOT [None]
  - HYPERHIDROSIS [None]
  - HYPERTENSION [None]
